FAERS Safety Report 8120988-5 (Version None)
Quarter: 2012Q1

REPORT INFORMATION
  Report Type: 
  Country: None (occurrence: None)
  Receive Date: 20120203
  Receipt Date: 20120124
  Transmission Date: 20120608
  Serious: Yes (Life-Threatening, Hospitalization)
  Sender: FDA-Public Use
  Company Number: 2012SP003462

PATIENT
  Age: 53 Year
  Sex: Female

DRUGS (2)
  1. CIPROFLOXACIN [Suspect]
  2. POSACONAZOLE [Suspect]

REACTIONS (5)
  - VENTRICULAR TACHYCARDIA [None]
  - DRUG INTERACTION [None]
  - ATRIAL FIBRILLATION [None]
  - RESUSCITATION [None]
  - LONG QT SYNDROME [None]
